FAERS Safety Report 7757770-4 (Version None)
Quarter: 2011Q3

REPORT INFORMATION
  Report Type: 
  Country: None (occurrence: None)
  Receive Date: 20110918
  Receipt Date: 20110908
  Transmission Date: 20111222
  Serious: Yes (Other)
  Sender: FDA-Public Use
  Company Number: US-ASTRAZENECA-2011SE41448

PATIENT
  Age: 68 Year
  Sex: Female

DRUGS (1)
  1. NEXIUM [Suspect]
     Route: 048

REACTIONS (8)
  - REGURGITATION [None]
  - PAIN [None]
  - THROAT IRRITATION [None]
  - INSOMNIA [None]
  - DRUG DOSE OMISSION [None]
  - FURUNCLE [None]
  - HIATUS HERNIA [None]
  - STAPHYLOCOCCAL INFECTION [None]
